FAERS Safety Report 7876460-0 (Version None)
Quarter: 2011Q4

REPORT INFORMATION
  Report Type: 
  Country: None (occurrence: None)
  Receive Date: 20111031
  Receipt Date: 20111028
  Transmission Date: 20120403
  Serious: Yes (Life-Threatening, Hospitalization)
  Sender: FDA-Public Use
  Company Number: GB-TEVA-306917ISR

PATIENT
  Age: 64 Year
  Sex: Female
  Weight: 100 kg

DRUGS (6)
  1. GABAPENTIN [Suspect]
     Indication: PAIN
     Route: 048
     Dates: start: 20110104, end: 20110601
  2. GLICLAZIDE [Concomitant]
  3. GABAPENTIN [Interacting]
     Dosage: 2700 MILLIGRAM;
     Route: 048
  4. GABAPENTIN [Interacting]
     Route: 048
     Dates: start: 20110601
  5. FENTANYL-100 [Interacting]
     Route: 062
     Dates: start: 20110615
  6. FENTANYL-100 [Interacting]
     Indication: PAIN IN EXTREMITY
     Dosage: 12.5MCG INCREASED TO 50MCG
     Route: 062
     Dates: start: 20110615

REACTIONS (4)
  - DRUG INTERACTION [None]
  - RESPIRATORY ARREST [None]
  - HYPOVENTILATION [None]
  - SOMNOLENCE [None]
